FAERS Safety Report 4732991-3 (Version None)
Quarter: 2005Q3

REPORT INFORMATION
  Report Type: 
  Country: None (occurrence: None)
  Receive Date: 20050803
  Receipt Date: 20050713
  Transmission Date: 20060218
  Serious: Yes (Death, Hospitalization)
  Sender: FDA-Public Use
  Company Number: PHBS2005JP09994

PATIENT
  Age: 62 Year
  Sex: Female
  Weight: 42 kg

DRUGS (1)
  1. GLEEVEC [Suspect]
     Indication: BLAST CRISIS IN MYELOGENOUS LEUKAEMIA
     Dosage: UNK, UNK
     Route: 048
     Dates: start: 20030621, end: 20030829

REACTIONS (18)
  - ALVEOLAR PROTEINOSIS [None]
  - BLOOD ANTIDIURETIC HORMONE INCREASED [None]
  - BLOOD PRESSURE INCREASED [None]
  - BONE MARROW LEUKAEMIC CELL INFILTRATION [None]
  - HYPONATRAEMIA [None]
  - HYPOXIA [None]
  - INAPPROPRIATE ANTIDIURETIC HORMONE SECRETION [None]
  - INTERSTITIAL LUNG DISEASE [None]
  - LUNG DISORDER [None]
  - MALIGNANT NEOPLASM PROGRESSION [None]
  - MENINGEAL LEUKAEMIA [None]
  - MULTI-ORGAN FAILURE [None]
  - NAUSEA [None]
  - NEUTROPENIA [None]
  - OPTIC DISC DISORDER [None]
  - PYREXIA [None]
  - VITH NERVE PARALYSIS [None]
  - VOMITING [None]
